FAERS Safety Report 10068068 (Version 2)
Quarter: 2014Q2

REPORT INFORMATION
  Report Type: Spontaneous
  Country: US (occurrence: US)
  Receive Date: 20140409
  Receipt Date: 20140409
  Transmission Date: 20141212
  Serious: Yes (Death, Hospitalization)
  Sender: FDA-Public Use
  Company Number: US-BAXTER-2014BAX016702

PATIENT
  Age: 60 Year
  Sex: Female
  Weight: 80.45 kg

DRUGS (2)
  1. DIANEAL LOW CALCIUM [Suspect]
     Indication: RENAL FAILURE CHRONIC
     Route: 033
     Dates: start: 2011
  2. DIANEAL LOW CALCIUM [Suspect]
     Indication: PERITONEAL DIALYSIS
     Dosage: LAST FILL
     Route: 033
     Dates: start: 2011

REACTIONS (2)
  - Death [Fatal]
  - Gallbladder disorder [Unknown]
